FAERS Safety Report 6551177-3 (Version None)
Quarter: 2010Q1

REPORT INFORMATION
  Report Type: 
  Country: None (occurrence: None)
  Receive Date: 20100121
  Receipt Date: 20100107
  Transmission Date: 20100710
  Serious: Yes (Disabling)
  Sender: FDA-Public Use
  Company Number: 2008AL011607

PATIENT
  Age: 60 Year
  Sex: Male

DRUGS (3)
  1. IRINOTECAN HYDROCHLORIDE [Suspect]
     Indication: RECTAL CANCER METASTATIC
     Dosage: 350 MG/M**2; IV
     Route: 042
     Dates: start: 20080509, end: 20080919
  2. OXALIPLATIN [Concomitant]
  3. CAPECITABINE [Concomitant]

REACTIONS (3)
  - GAIT DISTURBANCE [None]
  - HYPOAESTHESIA [None]
  - NEUROPATHY PERIPHERAL [None]
